FAERS Safety Report 7646906-1 (Version None)
Quarter: 2011Q3

REPORT INFORMATION
  Report Type: 
  Country: None (occurrence: None)
  Receive Date: 20110801
  Receipt Date: 20110725
  Transmission Date: 20111222
  Serious: Yes (Hospitalization, Other)
  Sender: FDA-Public Use
  Company Number: US-PERRIGO-11US005682

PATIENT
  Sex: Female
  Weight: 43.084 kg

DRUGS (6)
  1. CETIRIZINE HCL [Suspect]
     Indication: EYE PRURITUS
     Dosage: 10 MG, QD
     Dates: start: 20110701, end: 20110701
  2. CETIRIZINE HCL [Suspect]
     Indication: UPPER-AIRWAY COUGH SYNDROME
     Dosage: 10 MG, QD
     Route: 048
     Dates: start: 20110601, end: 20110601
  3. PERCOCET [Concomitant]
     Indication: PAIN
     Dosage: UNK
     Route: 048
     Dates: start: 20020101
  4. CETIRIZINE HCL [Suspect]
     Indication: HYPERSENSITIVITY
  5. CETIRIZINE HCL [Suspect]
     Indication: NASAL CONGESTION
  6. MULTI-VITAMINS [Concomitant]
     Indication: ROUTINE HEALTH MAINTENANCE
     Dosage: UNK
     Route: 048

REACTIONS (10)
  - SEPSIS [None]
  - PYREXIA [None]
  - DIZZINESS [None]
  - BRONCHIAL SECRETION RETENTION [None]
  - DISORIENTATION [None]
  - PNEUMONIA [None]
  - WHITE BLOOD CELL COUNT INCREASED [None]
  - INFLAMMATION [None]
  - CARDIAC MURMUR FUNCTIONAL [None]
  - REVERSIBLE AIRWAYS OBSTRUCTION [None]
